FAERS Safety Report 17037680 (Version 3)
Quarter: 2020Q1

REPORT INFORMATION
  Report Type: Report from Study
  Country: DE (occurrence: DE)
  Receive Date: 20191115
  Receipt Date: 20200110
  Transmission Date: 20200409
  Serious: Yes (Hospitalization)
  Sender: FDA-Public Use
  Company Number: NVSC2019DE034547

PATIENT
  Age: 68 Year
  Sex: Male
  Weight: 70 kg

DRUGS (6)
  1. PREDNISOLONE. [Suspect]
     Active Substance: PREDNISOLONE
     Dosage: 75 MG, QD
     Route: 048
     Dates: start: 20191031
  2. PREDNISOLONE. [Suspect]
     Active Substance: PREDNISOLONE
     Indication: CHRONIC GRAFT VERSUS HOST DISEASE
     Dosage: 75 MG
     Route: 048
     Dates: start: 20190930
  3. PREDNISOLONE. [Suspect]
     Active Substance: PREDNISOLONE
     Dosage: 150 MG, QD
     Route: 048
     Dates: start: 20191015, end: 20191021
  4. EVEROLIMUS. [Suspect]
     Active Substance: EVEROLIMUS
     Indication: CHRONIC GRAFT VERSUS HOST DISEASE
     Dosage: 3 MG, BID
     Route: 048
     Dates: start: 20191106
  5. PREDNISOLONE. [Suspect]
     Active Substance: PREDNISOLONE
     Dosage: 75 MG, QD
     Route: 048
     Dates: start: 20191106
  6. PREDNISOLONE. [Suspect]
     Active Substance: PREDNISOLONE
     Dosage: 100 MG, QD
     Route: 048
     Dates: start: 20191022, end: 20191030

REACTIONS (1)
  - Hyperglycaemia [Recovered/Resolved]

NARRATIVE: CASE EVENT DATE: 20191104
